FAERS Safety Report 12602858 (Version 8)
Quarter: 2016Q4

REPORT INFORMATION
  Report Type: Report from Study
  Country: CA (occurrence: CA)
  Receive Date: 20160728
  Receipt Date: 20161128
  Transmission Date: 20170207
  Serious: Yes (Hospitalization, Other)
  Sender: FDA-Public Use
  Company Number: CA-PFIZER INC-2016335876

PATIENT
  Age: 55 Year
  Sex: Female

DRUGS (15)
  1. VERAPAMIL [Concomitant]
     Active Substance: VERAPAMIL HYDROCHLORIDE
     Dosage: 420 MG, UNK
     Dates: start: 201501
  2. VITAMIN B12 [Concomitant]
     Active Substance: CYANOCOBALAMIN
     Dosage: UNK
  3. ENTOCORT [Concomitant]
     Active Substance: BUDESONIDE
     Dosage: 6 MG, UNK
  4. ENTYVIO [Suspect]
     Active Substance: VEDOLIZUMAB
     Dosage: 300 MG, UNK
     Route: 042
     Dates: start: 20160621, end: 20161004
  5. PREDNISONE. [Suspect]
     Active Substance: PREDNISONE
     Dosage: 40 MG, QD
     Route: 065
     Dates: start: 201606
  6. RAMIPRIL. [Concomitant]
     Active Substance: RAMIPRIL
     Dosage: UNK
  7. ENTYVIO [Suspect]
     Active Substance: VEDOLIZUMAB
     Indication: CROHN^S DISEASE
     Dosage: 300 MG, UNK
     Route: 042
     Dates: start: 20160621, end: 20161004
  8. SPIRIVA [Concomitant]
     Active Substance: TIOTROPIUM BROMIDE MONOHYDRATE
     Dosage: UNK
  9. SYMBICORT [Concomitant]
     Active Substance: BUDESONIDE\FORMOTEROL FUMARATE DIHYDRATE
     Dosage: UNK
  10. VENTOLIN [Concomitant]
     Active Substance: ALBUTEROL SULFATE
     Dosage: UNK
  11. PANTOLOC [Suspect]
     Active Substance: PANTOPRAZOLE SODIUM
     Dosage: 40 MG, UNK
     Route: 065
     Dates: start: 2015
  12. HIZENTRA [Concomitant]
     Active Substance: HUMAN IMMUNOGLOBULIN G
     Dosage: 8 MG, UNK
     Dates: start: 201601
  13. ZITHROMAX [Concomitant]
     Active Substance: AZITHROMYCIN DIHYDRATE
     Dosage: UNK, 3/WEEK
     Dates: start: 201510
  14. TRAZODONE [Concomitant]
     Active Substance: TRAZODONE HYDROCHLORIDE
     Dosage: 50 MG, UNK
  15. VITAMIN D [Concomitant]
     Active Substance: CHOLECALCIFEROL
     Dosage: UNK

REACTIONS (21)
  - Spinal fracture [Not Recovered/Not Resolved]
  - Dyspnoea [Unknown]
  - Poor venous access [Unknown]
  - Fatigue [Unknown]
  - Confusional state [Unknown]
  - Disturbance in attention [Unknown]
  - Bronchitis chronic [Unknown]
  - Abdominal pain [Unknown]
  - Pain in extremity [Unknown]
  - Infection [Unknown]
  - Muscular weakness [Unknown]
  - Lung infection [Unknown]
  - Lung infection [Not Recovered/Not Resolved]
  - Feeling hot [Unknown]
  - Infusion site bruising [Unknown]
  - Diarrhoea [Unknown]
  - Purpura [Unknown]
  - Headache [Unknown]
  - Osteoporosis [Not Recovered/Not Resolved]
  - Secretion discharge [Unknown]
  - Vision blurred [Unknown]

NARRATIVE: CASE EVENT DATE: 201606
